FAERS Safety Report 5390268-X (Version None)
Quarter: 2007Q3

REPORT INFORMATION
  Report Type: 
  Country: None (occurrence: None)
  Receive Date: 20070718
  Receipt Date: 20070709
  Transmission Date: 20080115
  Serious: No
  Sender: FDA-Public Use
  Company Number: DE-BAXTER-2007BH004222

PATIENT
  Age: 54 Year
  Sex: Male
  Weight: 85 kg

DRUGS (4)
  1. ADVATE [Suspect]
     Indication: FACTOR VIII DEFICIENCY
     Route: 042
     Dates: start: 20070202, end: 20070202
  2. ADVATE [Suspect]
     Indication: HAEMORRHAGE
     Route: 042
     Dates: start: 20070202, end: 20070202
  3. ADVATE [Suspect]
     Route: 042
     Dates: start: 20070323, end: 20070323
  4. ADVATE [Suspect]
     Route: 042
     Dates: start: 20070323, end: 20070323

REACTIONS (1)
  - LIVER FUNCTION TEST ABNORMAL [None]
